FAERS Safety Report 12728936 (Version 1)
Quarter: 2016Q3

REPORT INFORMATION
  Report Type: Spontaneous
  Country: US (occurrence: US)
  Receive Date: 20160908
  Receipt Date: 20160908
  Transmission Date: 20161109
  Serious: Yes (Life-Threatening, Disabling, Other)
  Sender: FDA-Public Use
  Company Number: None

PATIENT
  Age: 45 Year
  Sex: Female
  Weight: 87.75 kg

DRUGS (1)
  1. BOTOX [Suspect]
     Active Substance: ONABOTULINUMTOXINA
     Indication: SKIN COSMETIC PROCEDURE
     Dosage: OTHER STRENGTH:;OTHER DOSE:24 UNITS;OTHER FREQUENCY:EVERY 2 MONTHS;OTHER ROUTE:INJECTED INTO MY FOREHEAD FOR WRINKLES
     Dates: start: 20130502, end: 20160224

REACTIONS (3)
  - Pain in extremity [None]
  - Dyspnoea [None]
  - Paraesthesia [None]

NARRATIVE: CASE EVENT DATE: 20160303
